FAERS Safety Report 5715987-4 (Version None)
Quarter: 2008Q2

REPORT INFORMATION
  Report Type: 
  Country: None (occurrence: None)
  Receive Date: 20080424
  Receipt Date: 20080415
  Transmission Date: 20081010
  Serious: Yes (Hospitalization)
  Sender: FDA-Public Use
  Company Number: ES-ELI_LILLY_AND_COMPANY-ES200804004698

PATIENT
  Age: 77 Year
  Sex: Female

DRUGS (7)
  1. FORTEO [Suspect]
     Indication: OSTEOPOROSIS
     Dosage: 20 UG, UNKNOWN
     Route: 058
     Dates: start: 20080201, end: 20080410
  2. ANTI-PARKINSON AGENTS [Concomitant]
     Indication: PARKINSON'S DISEASE
  3. ADOLONTA [Concomitant]
  4. CINAMET [Concomitant]
  5. TETRAZEPAM [Concomitant]
  6. GELOCATIL [Concomitant]
     Indication: PAIN
  7. FLUVASTATIN [Concomitant]
     Indication: BLOOD CHOLESTEROL INCREASED

REACTIONS (2)
  - CEREBRAL THROMBOSIS [None]
  - DYSPHONIA [None]
